FAERS Safety Report 8219122-2 (Version None)
Quarter: 2012Q1

REPORT INFORMATION
  Report Type: 
  Country: None (occurrence: None)
  Receive Date: 20120319
  Receipt Date: 20120312
  Transmission Date: 20120608
  Serious: Yes (Other)
  Sender: FDA-Public Use
  Company Number: US-JNJFOC-20120307675

PATIENT
  Age: 62 Year
  Sex: Male
  Weight: 95.26 kg

DRUGS (9)
  1. LASIX [Concomitant]
     Route: 048
  2. PLAVIX [Concomitant]
     Route: 048
  3. FENTANYL-100 [Suspect]
     Indication: BACK PAIN
     Dosage: 100, 50, 25 UG/HR
     Route: 062
     Dates: end: 20120301
  4. LYRICA [Concomitant]
     Route: 048
  5. MOBIC [Concomitant]
     Route: 048
  6. ISORDIL [Concomitant]
     Route: 048
  7. ZOLOFT [Concomitant]
     Route: 048
  8. SIMVASTATIN [Concomitant]
     Route: 048
  9. ASPIRIN [Concomitant]
     Route: 048

REACTIONS (2)
  - PROSTATIC DISORDER [None]
  - DERMATITIS CONTACT [None]
